FAERS Safety Report 4537278-X (Version None)
Quarter: 2004Q4

REPORT INFORMATION
  Report Type: 
  Country: None (occurrence: None)
  Receive Date: 20041223
  Receipt Date: 20041220
  Transmission Date: 20050328
  Serious: Yes (Hospitalization)
  Sender: FDA-Public Use
  Company Number: PHFR2004GB04638

PATIENT
  Age: 69 Year
  Sex: Male

DRUGS (3)
  1. SPIRONOLACTONE [Concomitant]
     Route: 065
  2. PARACETAMOL [Concomitant]
     Dosage: 1 G, QID
  3. VOLTAREN [Suspect]
     Indication: ARTHRITIS
     Dosage: 50 MG, TID
     Route: 048

REACTIONS (5)
  - ANOREXIA [None]
  - DUODENAL ULCER [None]
  - HAEMOGLOBIN DECREASED [None]
  - MELAENA [None]
  - VARICES OESOPHAGEAL [None]
